FAERS Safety Report 6426568-1 (Version None)
Quarter: 2009Q4

REPORT INFORMATION
  Report Type: 
  Country: None (occurrence: None)
  Receive Date: 20091030
  Receipt Date: 20091009
  Transmission Date: 20100525
  Serious: Yes (Hospitalization, Other)
  Sender: FDA-Public Use
  Company Number: JPI-P-008424

PATIENT
  Age: 76 Year
  Sex: Male

DRUGS (3)
  1. FLUVOXAMINE MALEATE [Suspect]
     Indication: DEPRESSION
     Dosage: (50 MG, 1 D), ORAL
     Route: 048
     Dates: start: 20090622, end: 20090716
  2. WARFARIN SODIUM [Concomitant]
  3. NICORANDIL [Concomitant]

REACTIONS (6)
  - DECREASED APPETITE [None]
  - GAIT DISTURBANCE [None]
  - INAPPROPRIATE ANTIDIURETIC HORMONE SECRETION [None]
  - NAUSEA [None]
  - VOMITING [None]
  - WEIGHT DECREASED [None]
